FAERS Safety Report 8187105 (Version 3)
Quarter: 2013Q1

REPORT INFORMATION
  Report Type: Spontaneous
  Country: US (occurrence: US)
  Receive Date: 20111018
  Receipt Date: 20130206
  Transmission Date: 20140127
  Serious: Yes (Other)
  Sender: FDA-Public Use
  Company Number: US-ASTRAZENECA-2011SE42180

PATIENT
  Age: 78 Year
  Sex: Female

DRUGS (1)
  1. SYMBICORT PMDI [Suspect]
     Dosage: 160/4.5 MCG,UNKNOWN
     Route: 055

REACTIONS (3)
  - Blindness [Unknown]
  - Dyspnoea [Unknown]
  - Drug dose omission [Unknown]
